FAERS Safety Report 25194495 (Version 1)
Quarter: 2025Q2

REPORT INFORMATION
  Report Type: Spontaneous
  Country: ES (occurrence: ES)
  Receive Date: 20250414
  Receipt Date: 20250414
  Transmission Date: 20250716
  Serious: Yes (Other)
  Sender: REGENERON
  Company Number: ES-REGENERON PHARMACEUTICALS, INC.-2025-064431

PATIENT
  Age: 60 Year
  Sex: Female

DRUGS (1)
  1. LIBTAYO [Suspect]
     Active Substance: CEMIPLIMAB-RWLC
     Indication: Small cell lung cancer

REACTIONS (6)
  - Drug reaction with eosinophilia and systemic symptoms [Recovered/Resolved]
  - Pruritus [Unknown]
  - Dry mouth [Unknown]
  - Tinnitus [Unknown]
  - Headache [Unknown]
  - Dizziness [Unknown]
